FAERS Safety Report 4687151-1 (Version None)
Quarter: 2005Q2

REPORT INFORMATION
  Report Type: 
  Country: None (occurrence: None)
  Receive Date: 20050607
  Receipt Date: 20050519
  Transmission Date: 20051028
  Serious: Yes (Other)
  Sender: FDA-Public Use
  Company Number: USA050598537

PATIENT
  Sex: Male

DRUGS (4)
  1. GEMZAR [Suspect]
     Indication: NON-SMALL CELL LUNG CANCER STAGE IV
     Dosage: 1000 MG/M2
     Dates: start: 20050512, end: 20050518
  2. RADIATION THERAPY [Concomitant]
  3. DECADRON/00016001/(DEXAMETHASONE) [Concomitant]
  4. LISINOPRIL [Concomitant]

REACTIONS (1)
  - RECALL PHENOMENON [None]
